FAERS Safety Report 13742203 (Version 1)
Quarter: 2017Q3

REPORT INFORMATION
  Report Type: Spontaneous
  Country: US (occurrence: US)
  Receive Date: 20170711
  Receipt Date: 20170711
  Transmission Date: 20171127
  Serious: Yes (Other)
  Sender: FDA-Public Use
  Company Number: US-LPDUSPRD-20170937

PATIENT
  Sex: Male

DRUGS (1)
  1. BUSULFAN INJECTION (0517-0920-01) [Suspect]
     Active Substance: BUSULFAN
     Dosage: UNKNOWN
     Route: 065

REACTIONS (4)
  - Metastases to central nervous system [Unknown]
  - Neurological decompensation [Unknown]
  - Muscular weakness [Unknown]
  - Condition aggravated [Unknown]
